FAERS Safety Report 6825650-4 (Version None)
Quarter: 2010Q3

REPORT INFORMATION
  Report Type: 
  Country: None (occurrence: None)
  Receive Date: 20100709
  Receipt Date: 20100701
  Transmission Date: 20110219
  Serious: Yes (Hospitalization)
  Sender: FDA-Public Use
  Company Number: 133494

PATIENT
  Age: 39 Year
  Sex: Female
  Weight: 72 kg

DRUGS (5)
  1. AVONEX [Suspect]
     Indication: MULTIPLE SCLEROSIS
     Route: 030
     Dates: start: 19970401
  2. SYNTHROID [Concomitant]
     Indication: HYPOTHYROIDISM
  3. AMBIEN [Concomitant]
     Indication: INSOMNIA
     Dates: start: 19950101
  4. PROZAC [Concomitant]
     Indication: DEPRESSION
  5. BACLOFEN [Concomitant]
     Indication: MUSCLE SPASTICITY

REACTIONS (6)
  - HYPERAESTHESIA [None]
  - INFLUENZA LIKE ILLNESS [None]
  - INJECTION SITE FIBROSIS [None]
  - INSOMNIA [None]
  - OVARIAN CYST [None]
  - UTERINE LEIOMYOMA [None]
